FAERS Safety Report 7539240-1 (Version None)
Quarter: 2011Q2

REPORT INFORMATION
  Report Type: 
  Country: None (occurrence: None)
  Receive Date: 20110610
  Receipt Date: 20110603
  Transmission Date: 20111010
  Serious: Yes (Death)
  Sender: FDA-Public Use
  Company Number: DE-ROXANE LABORATORIES, INC.-2011-RO-00768RO

PATIENT
  Age: 75 Year

DRUGS (2)
  1. METHOTREXATE [Suspect]
     Indication: WEGENER'S GRANULOMATOSIS
  2. LEFLUNOMIDE [Suspect]
     Indication: WEGENER'S GRANULOMATOSIS

REACTIONS (1)
  - MYOCARDIAL INFARCTION [None]
